FAERS Safety Report 9529960 (Version 2)
Quarter: 2013Q3

REPORT INFORMATION
  Report Type: Spontaneous
  Country: US (occurrence: US)
  Receive Date: 20130917
  Receipt Date: 20130926
  Transmission Date: 20140515
  Serious: Yes (Hospitalization)
  Sender: FDA-Public Use
  Company Number: US-TEVA-432183USA

PATIENT
  Sex: Female

DRUGS (3)
  1. COPAXONE [Suspect]
     Indication: MULTIPLE SCLEROSIS
     Dates: start: 20070717
  2. DURAGESIC [Concomitant]
  3. MORPHINE [Concomitant]

REACTIONS (5)
  - Trigeminal neuralgia [Unknown]
  - Aphasia [Unknown]
  - Dehydration [Unknown]
  - Hypoaesthesia [Unknown]
  - Weight increased [Unknown]
